FAERS Safety Report 4998769-0 (Version None)
Quarter: 2006Q2

REPORT INFORMATION
  Report Type: 
  Country: None (occurrence: None)
  Receive Date: 20060509
  Receipt Date: 20060426
  Transmission Date: 20061013
  Serious: Yes (Hospitalization)
  Sender: FDA-Public Use
  Company Number: 2006S1003754

PATIENT
  Age: 57 Year
  Sex: Male

DRUGS (2)
  1. DOXEPIN HYDROCHLORIDE [Suspect]
     Indication: INSOMNIA
     Dosage: ORAL
     Route: 048
  2. ESCITALOPRAM OXALATE [Concomitant]

REACTIONS (6)
  - AMNESIA [None]
  - DEPRESSION [None]
  - GRAND MAL CONVULSION [None]
  - INCORRECT DOSE ADMINISTERED [None]
  - INSOMNIA [None]
  - MOBILITY DECREASED [None]
